FAERS Safety Report 9106560 (Version 1)
Quarter: 2013Q1

REPORT INFORMATION
  Report Type: Spontaneous
  Country: FR (occurrence: FR)
  Receive Date: 20130221
  Receipt Date: 20130221
  Transmission Date: 20140127
  Serious: Yes (Hospitalization)
  Sender: FDA-Public Use
  Company Number: FR-JNJFOC-20130206523

PATIENT
  Age: 61 Year
  Sex: Female

DRUGS (1)
  1. CAELYX [Suspect]
     Indication: PRODUCT USED FOR UNKNOWN INDICATION
     Route: 042
     Dates: start: 20130119, end: 20130120

REACTIONS (5)
  - Dermatitis bullous [Recovering/Resolving]
  - Rash papular [Recovering/Resolving]
  - Aphthous stomatitis [Recovering/Resolving]
  - Myalgia [Recovering/Resolving]
  - Dysphagia [Recovering/Resolving]
